FAERS Safety Report 6158361-1 (Version None)
Quarter: 2009Q2

REPORT INFORMATION
  Report Type: 
  Country: None (occurrence: None)
  Receive Date: 20090414
  Receipt Date: 20090414
  Transmission Date: 20091009
  Serious: Yes (Other)
  Sender: FDA-Public Use
  Company Number: None

PATIENT
  Age: 36 Year
  Sex: Male

DRUGS (1)
  1. REMBRANDT WHITENING STRIPS (DISC) [Suspect]
     Indication: DENTAL COSMETIC PROCEDURE
     Dates: start: 20090310

REACTIONS (1)
  - GINGIVAL PAIN [None]
